FAERS Safety Report 5417386-1 (Version None)
Quarter: 2007Q3

REPORT INFORMATION
  Report Type: 
  Country: None (occurrence: None)
  Receive Date: 20070814
  Receipt Date: 20070806
  Transmission Date: 20080115
  Serious: Yes (Hospitalization)
  Sender: FDA-Public Use
  Company Number: 2007RL000347

PATIENT
  Age: 67 Year
  Sex: Female
  Weight: 63.5036 kg

DRUGS (11)
  1. OMACOR [Suspect]
     Indication: ARTHRITIS
     Dosage: 1 GM;BID;PO
     Route: 048
     Dates: start: 20070601
  2. OMACOR [Suspect]
     Indication: BLOOD TRIGLYCERIDES INCREASED
     Dosage: 1 GM;BID;PO
     Route: 048
     Dates: start: 20070601
  3. COMBIVENT [Concomitant]
  4. CORGARD [Concomitant]
  5. SYNTHROID [Concomitant]
  6. PROTONIX [Concomitant]
  7. ASPIRIN [Concomitant]
  8. DOXYCYCLINE [Concomitant]
  9. CARAFATE [Concomitant]
  10. FORADIL [Concomitant]
  11. SEREVENT [Concomitant]

REACTIONS (9)
  - ABDOMINAL PAIN UPPER [None]
  - BACK PAIN [None]
  - CHEST PAIN [None]
  - DIZZINESS [None]
  - FATIGUE [None]
  - INSOMNIA [None]
  - NAUSEA [None]
  - OFF LABEL USE [None]
  - RESPIRATORY DISORDER [None]
